FAERS Safety Report 24817943 (Version 1)
Quarter: 2025Q1

REPORT INFORMATION
  Report Type: Other
  Country: US (occurrence: US)
  Receive Date: 20250108
  Receipt Date: 20250108
  Transmission Date: 20250409
  Serious: Yes (Death, Hospitalization)
  Sender: ALVOGEN
  Company Number: US-ALVOGEN-2024096057

PATIENT
  Age: 46 Year
  Sex: Female

DRUGS (1)
  1. DISULFIRAM [Suspect]
     Active Substance: DISULFIRAM
     Indication: Alcohol use disorder

REACTIONS (4)
  - Hepatic necrosis [Fatal]
  - Regenerative siderotic hepatic nodule [Fatal]
  - Cholestasis [Fatal]
  - Drug-induced liver injury [Fatal]
